FAERS Safety Report 9236212 (Version 1)
Quarter: 2013Q2

REPORT INFORMATION
  Report Type: Spontaneous
  Country: US (occurrence: None)
  Receive Date: 20130416
  Receipt Date: 20130416
  Transmission Date: 20140414
  Serious: Yes (Other)
  Sender: FDA-Public Use
  Company Number: None

PATIENT
  Age: 78 Year
  Sex: Female
  Weight: 77.11 kg

DRUGS (1)
  1. AUGMENTIN [Suspect]
     Indication: SINUSITIS
     Dosage: 2 A  DAY
     Dates: start: 20130308, end: 20130311

REACTIONS (5)
  - Rash [None]
  - Pruritus [None]
  - Abnormal faeces [None]
  - Tenderness [None]
  - Haemorrhoids [None]
